FAERS Safety Report 7305258-7 (Version None)
Quarter: 2011Q1

REPORT INFORMATION
  Report Type: 
  Country: None (occurrence: None)
  Receive Date: 20110222
  Receipt Date: 20110217
  Transmission Date: 20110831
  Serious: Yes (Hospitalization, Other)
  Sender: FDA-Public Use
  Company Number: US-PFIZER INC-2010165802

PATIENT
  Sex: Female

DRUGS (5)
  1. AMITRIPTYLINE [Concomitant]
     Indication: SLEEP DISORDER
     Dosage: UNK
     Dates: start: 20050101
  2. CYCLOBENZAPRINE [Concomitant]
     Indication: MUSCLE RELAXANT THERAPY
     Dosage: UNK
     Dates: start: 20050101
  3. CHANTIX [Suspect]
     Indication: SMOKING CESSATION THERAPY
     Dosage: STARTING PAK AND 1 MG, CONTINUING MONTH PAK
     Route: 048
     Dates: start: 20090309, end: 20090513
  4. NABUMETONE [Concomitant]
     Indication: PAIN
     Dosage: UNK
     Dates: start: 20050101
  5. NABUMETONE [Concomitant]
     Indication: ARTHRITIS

REACTIONS (3)
  - GRAND MAL CONVULSION [None]
  - MENTAL STATUS CHANGES [None]
  - DYSARTHRIA [None]
